FAERS Safety Report 23251429 (Version 1)
Quarter: 2023Q4

REPORT INFORMATION
  Report Type: Spontaneous
  Country: US (occurrence: US)
  Receive Date: 20231201
  Receipt Date: 20231201
  Transmission Date: 20240110
  Serious: No
  Sender: FDA-Public Use
  Company Number: US-BAYER-2023A169876

PATIENT
  Age: 59 Year
  Sex: Female
  Weight: 30.658 kg

DRUGS (18)
  1. ADEMPAS [Suspect]
     Active Substance: RIOCIGUAT
     Indication: Product used for unknown indication
  2. TYVASO DPI [Suspect]
     Active Substance: TREPROSTINIL
     Indication: Pulmonary arterial hypertension
     Dosage: 16 ?G, QID
     Dates: start: 2023
  3. TYVASO DPI [Suspect]
     Active Substance: TREPROSTINIL
     Indication: Pulmonary arterial hypertension
     Dosage: 32 ?G
  4. AMBRISENTAN [Suspect]
     Active Substance: AMBRISENTAN
     Indication: Pulmonary arterial hypertension
  5. RITUXAN [Concomitant]
     Active Substance: RITUXIMAB
  6. HYDROXYZINE HYDROCHLORIDE [Concomitant]
     Active Substance: HYDROXYZINE HYDROCHLORIDE
  7. CLARITIN [Concomitant]
     Active Substance: LORATADINE
  8. CLARITIN [Concomitant]
     Active Substance: LORATADINE
  9. GAMMAGARD [Concomitant]
     Active Substance: HUMAN IMMUNOGLOBULIN G
  10. FLUCONAZOLE [Concomitant]
     Active Substance: FLUCONAZOLE
  11. DIPHENHYDRAMINE HYDROCHLORIDE [Concomitant]
     Active Substance: DIPHENHYDRAMINE HYDROCHLORIDE
  12. DIPHENHYDRAMINE HYDROCHLORIDE [Concomitant]
     Active Substance: DIPHENHYDRAMINE HYDROCHLORIDE
  13. LETAIRIS [Concomitant]
     Active Substance: AMBRISENTAN
  14. ROSUVASTATIN [Concomitant]
     Active Substance: ROSUVASTATIN
  15. VITAMIN D3 [Concomitant]
     Active Substance: CHOLECALCIFEROL
  16. DOXYCYCLINE HYCLATE [Concomitant]
     Active Substance: DOXYCYCLINE HYCLATE
  17. TYLENOL [Concomitant]
     Active Substance: ACETAMINOPHEN
  18. MINERALS\VITAMINS [Concomitant]
     Active Substance: MINERALS\VITAMINS

REACTIONS (11)
  - Gastrooesophageal reflux disease [None]
  - Abdominal discomfort [None]
  - Headache [None]
  - Abdominal pain upper [None]
  - Cough [None]
  - Pulmonary pain [None]
  - Diarrhoea [None]
  - Abdominal distension [None]
  - Hypersensitivity [None]
  - Dizziness [None]
  - Hepatic enzyme increased [None]

NARRATIVE: CASE EVENT DATE: 20230101
